FAERS Safety Report 7564012-1 (Version None)
Quarter: 2011Q2

REPORT INFORMATION
  Report Type: 
  Country: None (occurrence: None)
  Receive Date: 20110622
  Receipt Date: 20110617
  Transmission Date: 20111010
  Serious: Yes (Other)
  Sender: FDA-Public Use
  Company Number: US-ABBOTT-11P-163-0733567-00

PATIENT
  Sex: Female
  Weight: 86.26 kg

DRUGS (5)
  1. SYNTHROID [Concomitant]
     Indication: THYROID DISORDER
  2. MAXZIDE [Concomitant]
     Indication: FLUID RETENTION
  3. ULTRAM [Concomitant]
     Indication: RHEUMATOID ARTHRITIS
  4. HUMIRA [Suspect]
     Indication: RHEUMATOID ARTHRITIS
     Dates: start: 20080101
  5. DAYPRO [Concomitant]
     Indication: RHEUMATOID ARTHRITIS

REACTIONS (6)
  - PYREXIA [None]
  - STAPHYLOCOCCAL SEPSIS [None]
  - JOINT SWELLING [None]
  - ARTHRALGIA [None]
  - STAPHYLOCOCCAL INFECTION [None]
  - ARTHRITIS INFECTIVE [None]
